FAERS Safety Report 24307402 (Version 1)
Quarter: 2024Q3

REPORT INFORMATION
  Report Type: Spontaneous
  Country: TW (occurrence: None)
  Receive Date: 20240911
  Receipt Date: 20240911
  Transmission Date: 20241016
  Serious: Yes (Other)
  Sender: ASTRAZENECA
  Company Number: 2024A203374

PATIENT
  Age: 39 Year
  Sex: Male
  Weight: 112.8 kg

DRUGS (10)
  1. QUETIAPINE [Suspect]
     Active Substance: QUETIAPINE
     Indication: Antipsychotic therapy
     Route: 048
  2. QUETIAPINE [Suspect]
     Active Substance: QUETIAPINE
     Indication: Antipsychotic therapy
     Route: 048
  3. HALOPERIDOL [Suspect]
     Active Substance: HALOPERIDOL
     Indication: Antipsychotic therapy
  4. HALOPERIDOL [Suspect]
     Active Substance: HALOPERIDOL
     Indication: Antipsychotic therapy
  5. HALOPERIDOL [Suspect]
     Active Substance: HALOPERIDOL
     Indication: Antipsychotic therapy
  6. LEVETIRACETAM [Suspect]
     Active Substance: LEVETIRACETAM
     Indication: Antipsychotic therapy
  7. RISPERIDONE [Concomitant]
     Active Substance: RISPERIDONE
     Indication: Antipsychotic therapy
  8. AMISULPRIDE [Concomitant]
     Active Substance: AMISULPRIDE
     Indication: Antipsychotic therapy
  9. FLUPENTIXOL [Concomitant]
     Active Substance: FLUPENTIXOL
     Indication: Antipsychotic therapy
  10. VALPROATE [Concomitant]
     Active Substance: VALPROIC ACID
     Indication: Antipsychotic therapy

REACTIONS (5)
  - Psychiatric decompensation [Unknown]
  - Behaviour disorder [Unknown]
  - Insomnia [Unknown]
  - Generalised tonic-clonic seizure [Unknown]
  - Drug ineffective [Unknown]
